FAERS Safety Report 8609406-8 (Version None)
Quarter: 2012Q3

REPORT INFORMATION
  Report Type: 
  Country: None (occurrence: None)
  Receive Date: 20120821
  Receipt Date: 20120809
  Transmission Date: 20120928
  Serious: No
  Sender: FDA-Public Use
  Company Number: US-ASTRAZENECA-2012SE56310

PATIENT
  Age: 78 Year
  Sex: Female
  Weight: 61.2 kg

DRUGS (6)
  1. TOPROL-XL [Concomitant]
     Indication: ATRIAL FIBRILLATION
  2. NEXIUM [Suspect]
     Indication: GASTROOESOPHAGEAL REFLUX DISEASE
     Route: 048
     Dates: start: 20120601, end: 20120801
  3. ZANTAC [Concomitant]
  4. NEXIUM [Suspect]
     Route: 048
     Dates: start: 20120601, end: 20120801
  5. CITRACAL D [Concomitant]
  6. TOPROL-XL [Concomitant]
     Indication: CARDIAC ABLATION

REACTIONS (7)
  - SLEEP DISORDER DUE TO A GENERAL MEDICAL CONDITION [None]
  - NIGHT SWEATS [None]
  - MUSCULOSKELETAL STIFFNESS [None]
  - PANIC ATTACK [None]
  - ARTHRALGIA [None]
  - PAIN IN EXTREMITY [None]
  - GAIT DISTURBANCE [None]
